FAERS Safety Report 6044021-4 (Version None)
Quarter: 2009Q1

REPORT INFORMATION
  Report Type: 
  Country: None (occurrence: None)
  Receive Date: 20090114
  Receipt Date: 20090114
  Transmission Date: 20090719
  Serious: No
  Sender: FDA-Public Use
  Company Number: None

PATIENT
  Sex: Female
  Weight: 73.4827 kg

DRUGS (2)
  1. LEVAQUIN [Suspect]
     Indication: BRONCHIAL DISORDER
     Dosage: ONE TABLET DAILY 5 DAYS PO
     Route: 048
     Dates: start: 20081229, end: 20081231
  2. LEVAQUIN [Suspect]
     Indication: PRODUCTIVE COUGH
     Dosage: ONE TABLET DAILY 5 DAYS PO
     Route: 048
     Dates: start: 20081229, end: 20081231

REACTIONS (4)
  - ARTHRALGIA [None]
  - GAIT DISTURBANCE [None]
  - PAIN IN EXTREMITY [None]
  - TENDON DISORDER [None]
